FAERS Safety Report 11463801 (Version 1)
Quarter: 2015Q3

REPORT INFORMATION
  Report Type: Spontaneous
  Country: US (occurrence: US)
  Receive Date: 20150831
  Receipt Date: 20150831
  Transmission Date: 20151125
  Serious: Yes (Other)
  Sender: FDA-Public Use
  Company Number: US-ELI_LILLY_AND_COMPANY-US201104000427

PATIENT
  Sex: Female

DRUGS (2)
  1. MILNACIPRAN [Interacting]
     Active Substance: MILNACIPRAN
  2. CYMBALTA [Suspect]
     Active Substance: DULOXETINE HYDROCHLORIDE
     Indication: DIABETIC NEUROPATHY
     Dosage: UNK

REACTIONS (3)
  - Serotonin syndrome [Recovered/Resolved]
  - Off label use [Not Recovered/Not Resolved]
  - Drug interaction [Recovered/Resolved]
